FAERS Safety Report 8330878-0 (Version None)
Quarter: 2012Q2

REPORT INFORMATION
  Report Type: 
  Country: None (occurrence: None)
  Receive Date: 20120502
  Receipt Date: 20120402
  Transmission Date: 20120825
  Serious: No
  Sender: FDA-Public Use
  Company Number: US-AMGEN-USASP2012020951

PATIENT
  Age: 56 Year
  Sex: Female

DRUGS (3)
  1. METHOTREXATE [Concomitant]
     Dosage: 6 MG, UNK
     Dates: start: 20040101
  2. ENBREL [Suspect]
     Indication: RHEUMATOID ARTHRITIS
     Dosage: UNK
     Dates: start: 20090918, end: 20111201
  3. PLAQUENIL [Concomitant]
     Dosage: 2 MG, UNK
     Dates: start: 20040101

REACTIONS (6)
  - STRESS [None]
  - JOINT SWELLING [None]
  - PARAESTHESIA [None]
  - RHEUMATOID ARTHRITIS [None]
  - MENISCUS LESION [None]
  - ARTHRALGIA [None]
